FAERS Safety Report 19922780 (Version 1)
Quarter: 2021Q4

REPORT INFORMATION
  Report Type: Spontaneous
  Country: US (occurrence: US)
  Receive Date: 20211005
  Receipt Date: 20211005
  Transmission Date: 20220303
  Serious: No
  Sender: FDA-Public Use
  Company Number: None

PATIENT
  Age: 29 Year
  Sex: Male
  Weight: 76.5 kg

DRUGS (2)
  1. LOTRIMIN ANTIFUNGAL (MICONAZOLE NITRATE) [Suspect]
     Active Substance: MICONAZOLE NITRATE
     Indication: Tinea cruris
     Dosage: ?          QUANTITY:4.6 OUNCE(S);
     Route: 061
     Dates: start: 20210929, end: 20210929
  2. LEXAPRO [Concomitant]
     Active Substance: ESCITALOPRAM OXALATE

REACTIONS (3)
  - Burning sensation [None]
  - Recalled product [None]
  - Product quality issue [None]

NARRATIVE: CASE EVENT DATE: 20210929
